FAERS Safety Report 18430726 (Version 3)
Quarter: 2020Q4

REPORT INFORMATION
  Report Type: Other
  Country: BR (occurrence: BR)
  Receive Date: 20201027
  Receipt Date: 20201204
  Transmission Date: 20210114
  Serious: Yes (Hospitalization, Other)
  Sender: FDA-Public Use
  Company Number: BR-ROCHE-2249984

PATIENT
  Age: 63 Year
  Sex: Female
  Weight: 70 kg

DRUGS (23)
  1. LEVOTHYROXINE SODIUM. [Concomitant]
     Active Substance: LEVOTHYROXINE SODIUM
     Indication: HYPOTHYROIDISM
  2. ESBRIET [Suspect]
     Active Substance: PIRFENIDONE
     Dosage: 2 CAPSULES 3 TIMES DAILY
     Route: 048
  3. PREBICTAL [Concomitant]
     Active Substance: PREGABALIN
  4. LEXAPRO [Concomitant]
     Active Substance: ESCITALOPRAM OXALATE
     Indication: DEPRESSION
  5. MOTILIUM [Concomitant]
     Active Substance: DOMPERIDONE
     Indication: GASTRITIS
  6. ESBRIET [Suspect]
     Active Substance: PIRFENIDONE
     Route: 048
     Dates: start: 201809
  7. BIPROFENID [Concomitant]
     Active Substance: KETOPROFEN
  8. OXYCONTIN [Concomitant]
     Active Substance: OXYCODONE HYDROCHLORIDE
     Indication: SPINAL DISORDER
     Dates: start: 201905
  9. ESBRIET [Suspect]
     Active Substance: PIRFENIDONE
     Route: 048
     Dates: start: 201812
  10. ESBRIET [Suspect]
     Active Substance: PIRFENIDONE
     Route: 048
  11. OXYCONTIN [Concomitant]
     Active Substance: OXYCODONE HYDROCHLORIDE
     Indication: BACK PAIN
  12. ESBRIET [Suspect]
     Active Substance: PIRFENIDONE
     Route: 048
  13. NIMESULIDE [Concomitant]
     Active Substance: NIMESULIDE
     Indication: HIATUS HERNIA
  14. ESBRIET [Suspect]
     Active Substance: PIRFENIDONE
     Route: 048
     Dates: start: 201810
  15. RIVOTRIL [Concomitant]
     Active Substance: CLONAZEPAM
     Indication: ANXIETY
  16. MOTILIUM [Concomitant]
     Active Substance: DOMPERIDONE
     Indication: HIATUS HERNIA
  17. LACTULONA [Concomitant]
  18. OXYCONTIN [Concomitant]
     Active Substance: OXYCODONE HYDROCHLORIDE
     Indication: SPINAL PAIN
  19. ESBRIET [Suspect]
     Active Substance: PIRFENIDONE
     Indication: IDIOPATHIC PULMONARY FIBROSIS
     Dosage: 3 CAPSULES 3 TIMES DAILY
     Route: 048
     Dates: start: 201811
  20. ESBRIET [Suspect]
     Active Substance: PIRFENIDONE
     Route: 048
     Dates: start: 20200210
  21. NIMESULIDE [Concomitant]
     Active Substance: NIMESULIDE
     Indication: NEUROPATHY PERIPHERAL
  22. ZOLPIDEM [Concomitant]
     Active Substance: ZOLPIDEM TARTRATE
  23. OXYCONTIN [Concomitant]
     Active Substance: OXYCODONE HYDROCHLORIDE
     Indication: DEPRESSION

REACTIONS (30)
  - Headache [Recovered/Resolved]
  - Depression [Not Recovered/Not Resolved]
  - Gastrointestinal disorder [Not Recovered/Not Resolved]
  - Abdominal pain upper [Recovered/Resolved]
  - Cough [Not Recovered/Not Resolved]
  - Skin irritation [Not Recovered/Not Resolved]
  - Dysphonia [Not Recovered/Not Resolved]
  - Ageusia [Recovered/Resolved]
  - Pruritus [Not Recovered/Not Resolved]
  - Gastritis erosive [Not Recovered/Not Resolved]
  - Nausea [Not Recovered/Not Resolved]
  - Decreased appetite [Recovered/Resolved]
  - Dyspnoea [Not Recovered/Not Resolved]
  - Dyspepsia [Not Recovered/Not Resolved]
  - Tooth fracture [Recovering/Resolving]
  - Speech disorder [Not Recovered/Not Resolved]
  - Malaise [Not Recovered/Not Resolved]
  - Constipation [Unknown]
  - Ill-defined disorder [Unknown]
  - Gastric disorder [Not Recovered/Not Resolved]
  - Abdominal pain upper [Not Recovered/Not Resolved]
  - Dyspepsia [Unknown]
  - Therapy cessation [Unknown]
  - Hiatus hernia [Not Recovered/Not Resolved]
  - Abdominal discomfort [Recovered/Resolved]
  - Pain [Unknown]
  - Diarrhoea [Unknown]
  - Pruritus [Recovered/Resolved]
  - Weight decreased [Unknown]
  - Cough [Not Recovered/Not Resolved]

NARRATIVE: CASE EVENT DATE: 20190513
